FAERS Safety Report 5013845-4 (Version None)
Quarter: 2006Q2

REPORT INFORMATION
  Report Type: 
  Country: None (occurrence: None)
  Receive Date: 20060526
  Receipt Date: 20060526
  Transmission Date: 20061013
  Serious: Yes (Other)
  Sender: FDA-Public Use
  Company Number: None

PATIENT
  Age: 53 Year
  Sex: Female
  Weight: 85.2762 kg

DRUGS (6)
  1. LEVOTHYROXINE SODIUM [Suspect]
     Indication: THYROID DISORDER
     Dosage: 1/2 TABLET  TWICE DAILY  ORALLY
     Route: 048
     Dates: start: 20060313
  2. VYTORIN [Concomitant]
  3. NORVASC [Concomitant]
  4. ACIPHEX [Concomitant]
  5. LOZOL [Concomitant]
  6. ASPIRIN [Concomitant]

REACTIONS (7)
  - ANOREXIA [None]
  - CHEST PAIN [None]
  - DYSPNOEA [None]
  - LETHARGY [None]
  - MUSCLE SPASMS [None]
  - THERAPEUTIC RESPONSE UNEXPECTED WITH DRUG SUBSTITUTION [None]
  - VOMITING [None]
